FAERS Safety Report 5472366-5 (Version None)
Quarter: 2007Q3

REPORT INFORMATION
  Report Type: 
  Country: None (occurrence: None)
  Receive Date: 20070930
  Receipt Date: 20070921
  Transmission Date: 20080115
  Serious: Yes (Hospitalization)
  Sender: FDA-Public Use
  Company Number: US-SHR-US-2007-028702

PATIENT
  Age: 38 Year
  Sex: Male
  Weight: 83.447 kg

DRUGS (2)
  1. BETASERON [Suspect]
     Indication: RELAPSING-REMITTING MULTIPLE SCLEROSIS
     Route: 058
     Dates: start: 20020415, end: 20070711
  2. BETASERON [Suspect]
     Route: 058
     Dates: start: 20070101

REACTIONS (2)
  - SKIN INFECTION [None]
  - URTICARIA [None]
